FAERS Safety Report 8533791-9 (Version None)
Quarter: 2012Q3

REPORT INFORMATION
  Report Type: 
  Country: None (occurrence: None)
  Receive Date: 20120711
  Receipt Date: 20120706
  Transmission Date: 20120928
  Serious: Yes (Other)
  Sender: FDA-Public Use
  Company Number: USA/USA/12/0024945

PATIENT
  Age: 13 Year
  Sex: Female

DRUGS (1)
  1. CETIRIZINE [Suspect]
     Dosage: 30 DOSAGE FORMS, 30 TABLETS ONCE, ORAL
     Route: 048
     Dates: start: 20120607

REACTIONS (3)
  - EXPIRED DRUG ADMINISTERED [None]
  - PRESYNCOPE [None]
  - INTENTIONAL OVERDOSE [None]
